FAERS Safety Report 21421916 (Version 1)
Quarter: 2022Q4

REPORT INFORMATION
  Report Type: Spontaneous
  Country: US (occurrence: US)
  Receive Date: 20221007
  Receipt Date: 20221007
  Transmission Date: 20230113
  Serious: No
  Sender: FDA-Public Use
  Company Number: US-GSK-US2022AMR142129

PATIENT
  Sex: Female

DRUGS (1)
  1. BENLYSTA [Suspect]
     Active Substance: BELIMUMAB
     Indication: Systemic lupus erythematosus
     Dosage: 200 MG, WE ONCE WEEKLY
     Route: 058

REACTIONS (7)
  - Rash [Unknown]
  - Rash pruritic [Unknown]
  - Skin burning sensation [Unknown]
  - Inflammation [Unknown]
  - Headache [Unknown]
  - Arthralgia [Unknown]
  - Drug ineffective [Unknown]
